FAERS Safety Report 24793354 (Version 2)
Quarter: 2025Q1

REPORT INFORMATION
  Report Type: Spontaneous
  Country: JP (occurrence: JP)
  Receive Date: 20241231
  Receipt Date: 20250108
  Transmission Date: 20250409
  Serious: No
  Sender: SANOFI AVENTIS
  Company Number: JP-SA-SAC20230913001473

PATIENT
  Sex: Female

DRUGS (6)
  1. OXALIPLATIN [Suspect]
     Active Substance: OXALIPLATIN
     Indication: Oesophageal carcinoma
  2. TS-1 [Suspect]
     Active Substance: GIMERACIL\OTERACIL POTASSIUM\TEGAFUR
     Indication: Oesophageal carcinoma
  3. FENTANYL [Suspect]
     Active Substance: FENTANYL
     Indication: Gastrointestinal obstruction
  4. FENTANYL [Suspect]
     Active Substance: FENTANYL
     Indication: Pain
  5. FENTANYL [Suspect]
     Active Substance: FENTANYL
     Dosage: 12 MG, QD
  6. OXYCODONE [Suspect]
     Active Substance: OXYCODONE
     Dosage: 160 MG, QD

REACTIONS (1)
  - Exposure during pregnancy [Unknown]
